FAERS Safety Report 21817115 (Version 1)
Quarter: 2023Q1

REPORT INFORMATION
  Report Type: Spontaneous
  Country: US (occurrence: US)
  Receive Date: 20230104
  Receipt Date: 20230104
  Transmission Date: 20230418
  Serious: Yes (Other)
  Sender: FDA-Public Use
  Company Number: US-PFIZER INC-PV202300000912

PATIENT
  Age: 61 Year
  Sex: Female

DRUGS (1)
  1. IBRANCE [Suspect]
     Active Substance: PALBOCICLIB
     Indication: Neoplasm malignant
     Dosage: 100 MG

REACTIONS (6)
  - Hypothyroidism [Unknown]
  - Colorectal adenoma [Unknown]
  - Back pain [Unknown]
  - Essential hypertension [Unknown]
  - Insomnia [Unknown]
  - Osteopenia [Unknown]
